FAERS Safety Report 8049888-6 (Version None)
Quarter: 2012Q1

REPORT INFORMATION
  Report Type: 
  Country: None (occurrence: None)
  Receive Date: 20120111
  Receipt Date: 20101029
  Transmission Date: 20120608
  Serious: No
  Sender: FDA-Public Use
  Company Number: 2010-06258

PATIENT
  Age: 56 Year
  Sex: Female

DRUGS (2)
  1. ADACEL (TD2CP) [Suspect]
     Indication: IMMUNISATION
     Dosage: I.M.
     Route: 030
     Dates: start: 20101013, end: 20101013
  2. TUBERSOL [Suspect]
     Indication: IMMUNISATION
     Dosage: I.D.
     Dates: start: 20101013, end: 20101013

REACTIONS (1)
  - TENOSYNOVITIS [None]
